FAERS Safety Report 6014707-6 (Version None)
Quarter: 2008Q4

REPORT INFORMATION
  Report Type: 
  Country: None (occurrence: None)
  Receive Date: 20081216
  Receipt Date: 20080915
  Transmission Date: 20090506
  Serious: Yes (Other)
  Sender: FDA-Public Use
  Company Number: US-WYE-H05996408

PATIENT
  Age: 55 Year
  Sex: Male
  Weight: 124.85 kg

DRUGS (2)
  1. EFFEXOR XR [Suspect]
     Indication: DEPRESSION
     Dosage: 225 MG 1X PER 1 DAY, ORAL
     Route: 048
     Dates: end: 20080910
  2. BENADRYL [Concomitant]

REACTIONS (1)
  - BLOOD PRESSURE INCREASED [None]
